FAERS Safety Report 10238039 (Version 1)
Quarter: 2014Q2

REPORT INFORMATION
  Report Type: Spontaneous
  Country: CO (occurrence: CO)
  Receive Date: 20140616
  Receipt Date: 20140616
  Transmission Date: 20141212
  Serious: Yes (Disabling)
  Sender: FDA-Public Use
  Company Number: CO-ELI_LILLY_AND_COMPANY-CO201406002213

PATIENT
  Age: 73 Year
  Sex: Male

DRUGS (1)
  1. OLANZAPINE [Suspect]
     Indication: AGITATION
     Dosage: 10 MG, QD
     Route: 048
     Dates: start: 20140415, end: 20140520

REACTIONS (3)
  - Extrapyramidal disorder [Recovering/Resolving]
  - Mutism [Recovering/Resolving]
  - Off label use [Recovered/Resolved]
